FAERS Safety Report 21124269 (Version 2)
Quarter: 2022Q3

REPORT INFORMATION
  Report Type: Spontaneous
  Country: US (occurrence: US)
  Receive Date: 20220725
  Receipt Date: 20220728
  Transmission Date: 20221027
  Serious: Yes (Other)
  Sender: FDA-Public Use
  Company Number: US-LEO Pharma-344251

PATIENT
  Age: 18 Year
  Sex: Male

DRUGS (2)
  1. ADBRY [Suspect]
     Active Substance: TRALOKINUMAB-LDRM
     Indication: Prurigo
     Dosage: DOSAGE : INITIAL DOSAGE NOT REPORTED THEN AT 300 MG EVERY TWO WEEKS SUBCUTANEOUSLY
     Route: 058
  2. DEVICE [Suspect]
     Active Substance: DEVICE
     Indication: Prurigo

REACTIONS (1)
  - Seizure [Recovered/Resolved]
